FAERS Safety Report 7029220-7 (Version None)
Quarter: 2010Q3

REPORT INFORMATION
  Report Type: 
  Country: None (occurrence: None)
  Receive Date: 20100830
  Receipt Date: 20100924
  Transmission Date: 20110219
  Serious: Yes (Hospitalization)
  Sender: FDA-Public Use
  Company Number: 2009AC000278

PATIENT
  Age: 76 Year
  Sex: Male

DRUGS (10)
  1. DIGOXIN [Suspect]
     Dosage: 0.25 MG; QD, PO
     Route: 048
     Dates: start: 20070801
  2. DIGOXIN [Suspect]
     Dosage: 0.125 MG; QD; PO
     Route: 048
     Dates: start: 20070901
  3. VITAMINS D [Concomitant]
  4. ASPIRIN [Concomitant]
  5. WARFARIN SODIUM [Concomitant]
  6. TIAZAC [Concomitant]
  7. ACETAMINOPHEN [Concomitant]
  8. OXYCODONE HCL [Concomitant]
  9. AMIODARONE HCL [Concomitant]
  10. PREVACID [Concomitant]

REACTIONS (19)
  - AORTIC VALVE INCOMPETENCE [None]
  - ARTHRALGIA [None]
  - ATRIAL FIBRILLATION [None]
  - DIZZINESS [None]
  - ECONOMIC PROBLEM [None]
  - ELECTROCARDIOGRAM ST-T CHANGE [None]
  - FATIGUE [None]
  - GAIT DISTURBANCE [None]
  - HEART RATE DECREASED [None]
  - HYPOTENSION [None]
  - MITRAL VALVE INCOMPETENCE [None]
  - MULTIPLE INJURIES [None]
  - NAUSEA [None]
  - NODAL RHYTHM [None]
  - PAIN [None]
  - TREATMENT NONCOMPLIANCE [None]
  - TRICUSPID VALVE INCOMPETENCE [None]
  - VISION BLURRED [None]
  - VISUAL IMPAIRMENT [None]
